FAERS Safety Report 5402217-6 (Version None)
Quarter: 2007Q3

REPORT INFORMATION
  Report Type: 
  Country: None (occurrence: None)
  Receive Date: 20070801
  Receipt Date: 20070725
  Transmission Date: 20080115
  Serious: Yes (Hospitalization)
  Sender: FDA-Public Use
  Company Number: US-BAXTER-2007BH006613

PATIENT
  Age: 17 Year
  Sex: Male

DRUGS (3)
  1. DEXAMETHASONE 0.5MG TAB [Suspect]
     Indication: ACUTE LYMPHOCYTIC LEUKAEMIA
     Dosage: DOSE UNIT:UNKNOWN
     Route: 065
  2. DOXORUBICIN HCL [Suspect]
     Indication: ACUTE LYMPHOCYTIC LEUKAEMIA
     Dosage: DOSE UNIT:UNKNOWN
     Route: 065
  3. RANITIDINE [Concomitant]
     Indication: DRUG USE FOR UNKNOWN INDICATION
     Dosage: DOSE UNIT:UNKNOWN
     Route: 065

REACTIONS (3)
  - GASTRITIS [None]
  - MUCOSAL INFLAMMATION [None]
  - SMALL INTESTINAL PERFORATION [None]
